FAERS Safety Report 6654641-1 (Version None)
Quarter: 2010Q1

REPORT INFORMATION
  Report Type: 
  Country: None (occurrence: None)
  Receive Date: 20100326
  Receipt Date: 20100318
  Transmission Date: 20100710
  Serious: Yes (Other)
  Sender: FDA-Public Use
  Company Number: PHHY2010US17766

PATIENT
  Sex: Male

DRUGS (1)
  1. FANAPT [Suspect]
     Dosage: 2 MG, BID
     Route: 048

REACTIONS (2)
  - CARDIOVASCULAR DISORDER [None]
  - TACHYCARDIA [None]
